FAERS Safety Report 14818987 (Version 1)
Quarter: 2018Q2

REPORT INFORMATION
  Report Type: Spontaneous
  Country: CA (occurrence: CA)
  Receive Date: 20180427
  Receipt Date: 20180427
  Transmission Date: 20180711
  Serious: Yes (Other)
  Sender: FDA-Public Use
  Company Number: CA-TEVA-2018-CA-886671

PATIENT
  Age: 9 Day
  Sex: Female

DRUGS (1)
  1. NYSTATIN ORAL SUSPENSION 100000UNIT/ML USP [Suspect]
     Active Substance: NYSTATIN
     Indication: ORAL CANDIDIASIS
     Route: 048

REACTIONS (4)
  - Erythema [Unknown]
  - Diarrhoea [Unknown]
  - Frequent bowel movements [Unknown]
  - Haematochezia [Unknown]
